FAERS Safety Report 22347370 (Version 1)
Quarter: 2023Q2

REPORT INFORMATION
  Report Type: Spontaneous
  Country: US (occurrence: None)
  Receive Date: 20230521
  Receipt Date: 20230521
  Transmission Date: 20230721
  Serious: Yes (Other)
  Sender: FDA-Public Use
  Company Number: 2023A115694

PATIENT
  Age: 74 Year

DRUGS (1)
  1. TEZSPIRE [Suspect]
     Active Substance: TEZEPELUMAB-EKKO

REACTIONS (5)
  - Road traffic accident [Unknown]
  - Multiple fractures [Unknown]
  - Spinal compression fracture [Unknown]
  - Dizziness [Unknown]
  - Middle insomnia [Unknown]
